FAERS Safety Report 8207280-5 (Version None)
Quarter: 2012Q1

REPORT INFORMATION
  Report Type: 
  Country: None (occurrence: None)
  Receive Date: 20120314
  Receipt Date: 20120309
  Transmission Date: 20120608
  Serious: Yes (Other)
  Sender: FDA-Public Use
  Company Number: FR-BAYER-2012-024346

PATIENT
  Age: 54 Year
  Sex: Female

DRUGS (4)
  1. BETASERON [Suspect]
  2. BETAHISTINE [Concomitant]
     Indication: DIZZINESS
  3. LYRICA [Concomitant]
  4. NEURONTIN [Concomitant]

REACTIONS (1)
  - DUODENAL ULCER [None]
